FAERS Safety Report 19915378 (Version 1)
Quarter: 2021Q4

REPORT INFORMATION
  Report Type: Spontaneous
  Country: US (occurrence: US)
  Receive Date: 20211004
  Receipt Date: 20211004
  Transmission Date: 20220303
  Serious: No
  Sender: FDA-Public Use
  Company Number: US-OTSUKA-2019_026535

PATIENT
  Sex: Male

DRUGS (2)
  1. ARIPIPRAZOLE [Suspect]
     Active Substance: ARIPIPRAZOLE
     Indication: Autism spectrum disorder
     Dosage: 5 MG, UNK
     Route: 065
  2. ARIPIPRAZOLE [Suspect]
     Active Substance: ARIPIPRAZOLE
     Dosage: 30 MG, UNK
     Route: 065

REACTIONS (6)
  - Immunodeficiency [Not Recovered/Not Resolved]
  - Ocular hyperaemia [Unknown]
  - Glucose tolerance impaired [Unknown]
  - Aggression [Unknown]
  - Hypersensitivity [Unknown]
  - Weight increased [Unknown]
